FAERS Safety Report 6326966-0 (Version None)
Quarter: 2009Q3

REPORT INFORMATION
  Report Type: 
  Country: None (occurrence: None)
  Receive Date: 20090825
  Receipt Date: 20090814
  Transmission Date: 20100115
  Serious: Yes (Death, Hospitalization, Other)
  Sender: FDA-Public Use
  Company Number: US-TEVA-201667USA

PATIENT
  Sex: Male

DRUGS (9)
  1. CEPHALEXIN [Suspect]
     Indication: CELLULITIS
     Route: 048
     Dates: start: 20090707, end: 20090707
  2. METOPROLOL [Concomitant]
  3. CLOPIDOGREL [Concomitant]
  4. HYDROCHLOROTHIAZIDE [Concomitant]
  5. PANTOPRAZOLE SODIUM [Concomitant]
  6. DARIFENACIN HYDROBROMIDE [Concomitant]
  7. ATORVASTATIN CALCIUM [Concomitant]
  8. SERETIDE                           /01420901/ [Concomitant]
  9. SALBUTAMOL [Concomitant]

REACTIONS (4)
  - ANAPHYLACTIC SHOCK [None]
  - ENDOTRACHEAL INTUBATION COMPLICATION [None]
  - LOSS OF CONSCIOUSNESS [None]
  - UNRESPONSIVE TO STIMULI [None]
